FAERS Safety Report 7974503-7 (Version None)
Quarter: 2011Q4

REPORT INFORMATION
  Report Type: 
  Country: None (occurrence: None)
  Receive Date: 20111213
  Receipt Date: 20111208
  Transmission Date: 20120403
  Serious: Yes (Other)
  Sender: FDA-Public Use
  Company Number: RO-CEPHALON-INT-C-10490011

PATIENT
  Sex: Female
  Weight: 70 kg

DRUGS (4)
  1. SPECIAFOLDINE [Concomitant]
     Dosage: (DOSE:5, UNIT:MG, INTAKE:3 PER DAY, RATE:1/1 DAYS)
     Dates: start: 20010426
  2. MODAFANIL [Suspect]
     Dosage: (DOSE:100, UNIT:MG, FORM:TABLET, INTAKE:2 PER DAY, RATE:1/1 DAYS)
     Route: 048
     Dates: start: 20010504, end: 20010510
  3. ASPEGIC 250 [Concomitant]
     Dosage: (DOSE:250, UNIT:MG, INTAKE:1 PER DAY, RATE:1/1 DAYS)
     Route: 048
     Dates: start: 20010424
  4. GLUTAMATE DE FER [Concomitant]
     Dosage: (DOSE:100, UNIT:MG, INTAKE:4 PER DAY, RATE:1/1 DAYS)
     Route: 048
     Dates: start: 20010425

REACTIONS (1)
  - ANGINA PECTORIS [None]
